FAERS Safety Report 20695615 (Version 1)
Quarter: 2022Q2

REPORT INFORMATION
  Report Type: Spontaneous
  Country: SA (occurrence: SA)
  Receive Date: 20220411
  Receipt Date: 20220411
  Transmission Date: 20220721
  Serious: Yes (Other)
  Sender: FDA-Public Use
  Company Number: SA-BoehringerIngelheim-2022-BI-164522

PATIENT
  Sex: Male

DRUGS (3)
  1. JARDIANCE [Suspect]
     Active Substance: EMPAGLIFLOZIN
     Indication: Type 2 diabetes mellitus
  2. DULAGLUTIDE [Concomitant]
     Active Substance: DULAGLUTIDE
     Indication: Product used for unknown indication
  3. INSULIN NOS [Concomitant]
     Active Substance: INSULIN NOS
     Indication: Product used for unknown indication

REACTIONS (1)
  - Diabetic ketoacidosis [Unknown]
